FAERS Safety Report 8170543-6 (Version None)
Quarter: 2012Q1

REPORT INFORMATION
  Report Type: 
  Country: None (occurrence: None)
  Receive Date: 20120104
  Receipt Date: 20110920
  Transmission Date: 20120608
  Serious: No
  Sender: FDA-Public Use
  Company Number: 2011HGS-002558

PATIENT
  Age: 70 Year
  Sex: Female
  Weight: 69.4003 kg

DRUGS (3)
  1. PLAQUENIL [Concomitant]
  2. BENLYSTA [Suspect]
     Indication: SYSTEMIC LUPUS ERYTHEMATOSUS
     Dosage: 10 MG/KG, 1 IN 4 WK, INTRAVENOUS DRIP
     Route: 041
     Dates: start: 20110621, end: 20110823
  3. IMURAN (AZATHIORPINE) [Concomitant]

REACTIONS (4)
  - BLISTER [None]
  - PAIN IN EXTREMITY [None]
  - HYPERSENSITIVITY [None]
  - PHARYNGEAL OEDEMA [None]
